FAERS Safety Report 5506342-0 (Version None)
Quarter: 2007Q4

REPORT INFORMATION
  Report Type: 
  Country: None (occurrence: None)
  Receive Date: 20071105
  Receipt Date: 20071031
  Transmission Date: 20080405
  Serious: Yes (Hospitalization)
  Sender: FDA-Public Use
  Company Number: FR-AVENTIS-200713298FR

PATIENT
  Age: 65 Year
  Sex: Male

DRUGS (7)
  1. LOVENOX [Suspect]
     Route: 058
     Dates: start: 20070918, end: 20070927
  2. MERONEM                            /01250501/ [Suspect]
     Indication: MENINGITIS
     Route: 042
     Dates: start: 20070910, end: 20070927
  3. VANCOMYCIN [Suspect]
     Indication: MENINGITIS
     Route: 042
     Dates: start: 20070910, end: 20071001
  4. FOSFOMYCINE [Suspect]
     Indication: MENINGITIS
     Route: 042
     Dates: start: 20070916, end: 20070927
  5. DEPAKENE [Suspect]
     Indication: EPILEPSY
     Dosage: ROUTE: NASOGASTRIC
     Route: 050
     Dates: start: 20070911, end: 20070927
  6. LAMICTAL [Concomitant]
     Route: 048
  7. ATENOLOL [Concomitant]

REACTIONS (1)
  - PANCYTOPENIA [None]
